FAERS Safety Report 14343473 (Version 1)
Quarter: 2018Q1

REPORT INFORMATION
  Report Type: Spontaneous
  Country: CO (occurrence: CO)
  Receive Date: 20180102
  Receipt Date: 20180102
  Transmission Date: 20180509
  Serious: Yes (Other)
  Sender: FDA-Public Use
  Company Number: CO-PFIZER INC-2018000124

PATIENT
  Age: 11 Year
  Sex: Male

DRUGS (1)
  1. ADVIL FASTGEL [Suspect]
     Active Substance: IBUPROFEN
     Indication: FRACTURE PAIN
     Dosage: 2 DF, EVERY 8 HOURS
     Route: 048

REACTIONS (1)
  - Optic neuritis [Recovering/Resolving]
